FAERS Safety Report 6655463-8 (Version None)
Quarter: 2010Q1

REPORT INFORMATION
  Report Type: 
  Country: None (occurrence: None)
  Receive Date: 20100329
  Receipt Date: 20100319
  Transmission Date: 20100710
  Serious: Yes (Other)
  Sender: FDA-Public Use
  Company Number: GB-PFIZER INC-2010036095

PATIENT
  Sex: Female

DRUGS (2)
  1. LIPITOR [Suspect]
     Dosage: 10 MG, UNK
  2. LEVOTHYROXINE SODIUM [Concomitant]
     Dosage: UNK

REACTIONS (4)
  - AGITATION [None]
  - BLISTER [None]
  - HEPATIC FUNCTION ABNORMAL [None]
  - RENAL IMPAIRMENT [None]
